FAERS Safety Report 8462097-1 (Version None)
Quarter: 2012Q2

REPORT INFORMATION
  Report Type: 
  Country: None (occurrence: None)
  Receive Date: 20120625
  Receipt Date: 20120614
  Transmission Date: 20120825
  Serious: Yes (Other)
  Sender: FDA-Public Use
  Company Number: US-JNJFOC-20110706590

PATIENT
  Sex: Male
  Weight: 122.47 kg

DRUGS (5)
  1. REMICADE [Suspect]
     Route: 042
     Dates: start: 20110429
  2. HYDROCHLOROTHIAZIDE [Concomitant]
     Indication: HYPERTENSION
     Route: 048
  3. ARAVA [Concomitant]
     Indication: ARTHRITIS
     Route: 048
  4. MULTIGEN VITAMIN [Concomitant]
     Indication: ANAEMIA
     Route: 048
  5. REMICADE [Suspect]
     Indication: RHEUMATOID ARTHRITIS
     Route: 042
     Dates: start: 20101008

REACTIONS (4)
  - TRANSIENT ACANTHOLYTIC DERMATOSIS [None]
  - RASH PRURITIC [None]
  - INFUSION RELATED REACTION [None]
  - GASTROOESOPHAGEAL REFLUX DISEASE [None]
